FAERS Safety Report 17604766 (Version 1)
Quarter: 2020Q1

REPORT INFORMATION
  Report Type: Spontaneous
  Country: US (occurrence: US)
  Receive Date: 20200331
  Receipt Date: 20200331
  Transmission Date: 20200409
  Serious: Yes (Hospitalization)
  Sender: FDA-Public Use
  Company Number: None

PATIENT
  Sex: Female

DRUGS (16)
  1. COLCRYS [Concomitant]
     Active Substance: COLCHICINE
  2. ENBREL [Suspect]
     Active Substance: ETANERCEPT
     Indication: RHEUMATOID ARTHRITIS
     Dosage: ?          OTHER FREQUENCY:ONCE A WEEK;?
     Route: 058
     Dates: start: 20170510
  3. BACLOFEN. [Concomitant]
     Active Substance: BACLOFEN
  4. GABAPENTIN. [Concomitant]
     Active Substance: GABAPENTIN
  5. MOVANTIK [Concomitant]
     Active Substance: NALOXEGOL OXALATE
  6. PANTOPRAZOLE [Concomitant]
     Active Substance: PANTOPRAZOLE
  7. BUPREN/NALOX [Concomitant]
     Active Substance: BUPRENORPHINE\NALOXONE
  8. LEFLUNOMIDE. [Concomitant]
     Active Substance: LEFLUNOMIDE
  9. ONDANSETRON [Concomitant]
     Active Substance: ONDANSETRON
  10. TAMSULOSIN [Concomitant]
     Active Substance: TAMSULOSIN
  11. CEVIMELINE. [Concomitant]
     Active Substance: CEVIMELINE
  12. PREDNISONE. [Concomitant]
     Active Substance: PREDNISONE
  13. HYDROXYCHLOR [Concomitant]
     Active Substance: HYDROXYCHLOROQUINE
  14. DAPSONE. [Concomitant]
     Active Substance: DAPSONE
  15. DICLOFENAC GEL [Concomitant]
     Active Substance: DICLOFENAC
  16. TRAZODONE [Concomitant]
     Active Substance: TRAZODONE HYDROCHLORIDE

REACTIONS (3)
  - Impaired quality of life [None]
  - Injection site pain [None]
  - Kidney infection [None]
